FAERS Safety Report 25649863 (Version 1)
Quarter: 2025Q3

REPORT INFORMATION
  Report Type: Spontaneous
  Country: US (occurrence: US)
  Receive Date: 20250806
  Receipt Date: 20250806
  Transmission Date: 20251021
  Serious: No
  Sender: MYLAN
  Company Number: US-MYLANLABS-2025M1062196

PATIENT
  Sex: Male
  Weight: 70.76 kg

DRUGS (4)
  1. FENTANYL TRANSDERMAL SYSTEM [Suspect]
     Active Substance: FENTANYL
     Indication: Abdominal pain upper
     Dosage: 25 MICROGRAM, QH (PER HOUR, EVERY 72 HOURS)
     Dates: start: 2025
  2. FENTANYL TRANSDERMAL SYSTEM [Suspect]
     Active Substance: FENTANYL
     Dosage: 25 MICROGRAM, QH (PER HOUR, EVERY 72 HOURS)
     Route: 062
     Dates: start: 2025
  3. FENTANYL TRANSDERMAL SYSTEM [Suspect]
     Active Substance: FENTANYL
     Dosage: 25 MICROGRAM, QH (PER HOUR, EVERY 72 HOURS)
     Route: 062
     Dates: start: 2025
  4. FENTANYL TRANSDERMAL SYSTEM [Suspect]
     Active Substance: FENTANYL
     Dosage: 25 MICROGRAM, QH (PER HOUR, EVERY 72 HOURS)
     Dates: start: 2025

REACTIONS (5)
  - Feeling jittery [Unknown]
  - Nervousness [Unknown]
  - Pruritus [Unknown]
  - Product substitution issue [Unknown]
  - Off label use [Unknown]

NARRATIVE: CASE EVENT DATE: 20250101
